FAERS Safety Report 8211238-X (Version None)
Quarter: 2012Q1

REPORT INFORMATION
  Report Type: 
  Country: None (occurrence: None)
  Receive Date: 20120315
  Receipt Date: 20120308
  Transmission Date: 20120608
  Serious: No
  Sender: FDA-Public Use
  Company Number: US-PFIZER INC-2012062732

PATIENT
  Sex: Female

DRUGS (2)
  1. DEPO-PROVERA [Suspect]
     Indication: OFF LABEL USE
  2. DEPO-PROVERA [Suspect]
     Indication: ENDOMETRIOSIS
     Dosage: UNK
     Dates: start: 20110101

REACTIONS (11)
  - DIZZINESS [None]
  - INJECTION SITE PAIN [None]
  - ABDOMINAL DISCOMFORT [None]
  - NAUSEA [None]
  - DECREASED APPETITE [None]
  - INFLUENZA LIKE ILLNESS [None]
  - HEADACHE [None]
  - EYE PAIN [None]
  - PAIN [None]
  - OROPHARYNGEAL PAIN [None]
  - INSOMNIA [None]
